FAERS Safety Report 17505164 (Version 1)
Quarter: 2020Q1

REPORT INFORMATION
  Report Type: Spontaneous
  Country: CZ (occurrence: CZ)
  Receive Date: 20200306
  Receipt Date: 20200306
  Transmission Date: 20200409
  Serious: Yes (Life-Threatening, Hospitalization, Other)
  Sender: FDA-Public Use
  Company Number: CZ-AUROBINDO-AUR-APL-2020-003920

PATIENT
  Age: 67 Year
  Sex: Male

DRUGS (3)
  1. LINEZOLID. [Suspect]
     Active Substance: LINEZOLID
     Indication: STAPHYLOCOCCAL OSTEOMYELITIS
     Dosage: 12 GRAM, ONCE A DAY
     Route: 051
  2. LINEZOLID. [Suspect]
     Active Substance: LINEZOLID
     Indication: OSTEOMYELITIS
  3. MEROPENEM. [Concomitant]
     Active Substance: MEROPENEM
     Indication: PRODUCT USED FOR UNKNOWN INDICATION
     Dosage: 6 GRAM, ONCE A DAY
     Route: 065

REACTIONS (6)
  - Vomiting [Unknown]
  - Nausea [Unknown]
  - Product use in unapproved indication [Unknown]
  - Lactic acidosis [Unknown]
  - Tachypnoea [Unknown]
  - Altered state of consciousness [Unknown]
